FAERS Safety Report 7731328-5 (Version None)
Quarter: 2011Q3

REPORT INFORMATION
  Report Type: 
  Country: None (occurrence: None)
  Receive Date: 20110906
  Receipt Date: 20110614
  Transmission Date: 20111222
  Serious: No
  Sender: FDA-Public Use
  Company Number: US-AMGEN-USASP2011020819

PATIENT
  Age: 52 Year
  Sex: Female

DRUGS (2)
  1. CALCIUM WITH VITAMIN D             /00944201/ [Concomitant]
  2. PROLIA [Suspect]
     Indication: OSTEOPOROSIS POSTMENOPAUSAL
     Dosage: 60 MG, Q6MO
     Dates: start: 20110323

REACTIONS (3)
  - BLOOD GLUCOSE INCREASED [None]
  - THYROID FUNCTION TEST ABNORMAL [None]
  - FRACTURE [None]
